FAERS Safety Report 15286121 (Version 2)
Quarter: 2018Q3

REPORT INFORMATION
  Report Type: Report from Study
  Country: US (occurrence: US)
  Receive Date: 20180816
  Receipt Date: 20180904
  Transmission Date: 20181010
  Serious: Yes (Hospitalization, Other)
  Sender: FDA-Public Use
  Company Number: US-BAYER-2018-140228

PATIENT
  Age: 82 Year
  Sex: Female
  Weight: 81.63 kg

DRUGS (2)
  1. APIXABAN [Concomitant]
     Active Substance: APIXABAN
     Dosage: UNK
  2. ADEMPAS [Suspect]
     Active Substance: RIOCIGUAT
     Indication: PULMONARY ARTERIAL HYPERTENSION
     Dosage: 0.5 MG, TID
     Route: 048
     Dates: start: 20180516, end: 2018

REACTIONS (15)
  - Pyrexia [None]
  - Vomiting [None]
  - Dizziness [None]
  - Weight increased [Unknown]
  - Large intestine polyp [Unknown]
  - Muscular weakness [None]
  - Haemorrhage [None]
  - Pollakiuria [None]
  - Haemorrhagic anaemia [Not Recovered/Not Resolved]
  - Cellulitis [Unknown]
  - Flank pain [Unknown]
  - Troponin increased [None]
  - Diarrhoea [None]
  - Cystitis [Unknown]
  - Hallucination [None]

NARRATIVE: CASE EVENT DATE: 2018
